APPROVED DRUG PRODUCT: NARATRIPTAN
Active Ingredient: NARATRIPTAN HYDROCHLORIDE
Strength: EQ 2.5MG BASE
Dosage Form/Route: TABLET;ORAL
Application: A090381 | Product #002 | TE Code: AB
Applicant: HIKMA PHARMACEUTICALS USA INC
Approved: Jul 7, 2010 | RLD: No | RS: No | Type: RX